FAERS Safety Report 5247356-8 (Version None)
Quarter: 2007Q1

REPORT INFORMATION
  Report Type: 
  Country: None (occurrence: None)
  Receive Date: 20070227
  Receipt Date: 20070223
  Transmission Date: 20070707
  Serious: Yes (Other)
  Sender: FDA-Public Use
  Company Number: CHWYE759423FEB07

PATIENT
  Age: 53 Year
  Sex: Female

DRUGS (5)
  1. TAZOBAC [Suspect]
     Indication: PYREXIA
     Route: 041
     Dates: start: 20070203, end: 20070206
  2. TAZOBAC [Suspect]
     Indication: C-REACTIVE PROTEIN INCREASED
  3. DIFLUCAN [Concomitant]
     Indication: MENINGITIS CRYPTOCOCCAL
     Route: 048
     Dates: start: 20070123
  4. FLAGYL [Concomitant]
     Indication: ENTEROCOLITIS BACTERIAL
     Route: 048
     Dates: start: 20070204
  5. MYSOLINE [Suspect]
     Indication: TREMOR
     Route: 048
     Dates: start: 20061115, end: 20070206

REACTIONS (6)
  - DRUG HYPERSENSITIVITY [None]
  - EOSINOPHILIA [None]
  - EXFOLIATIVE RASH [None]
  - GENERAL PHYSICAL HEALTH DETERIORATION [None]
  - PYREXIA [None]
  - SKIN HYPERPIGMENTATION [None]
